FAERS Safety Report 22186720 (Version 1)
Quarter: 2023Q2

REPORT INFORMATION
  Report Type: Report from Study
  Country: ZA (occurrence: ZA)
  Receive Date: 20230407
  Receipt Date: 20230407
  Transmission Date: 20230721
  Serious: Yes (Hospitalization, Other)
  Sender: FDA-Public Use
  Company Number: ZA-AstraZeneca-2023A074558

PATIENT
  Age: 142 Day
  Sex: Female
  Weight: 2 kg

DRUGS (1)
  1. SYNAGIS [Suspect]
     Active Substance: PALIVIZUMAB
     Indication: Respiratory syncytial virus infection
     Dosage: FREQUENCY: MONTHLY
     Route: 030
     Dates: start: 20230228

REACTIONS (1)
  - Meningitis [Unknown]

NARRATIVE: CASE EVENT DATE: 20230315
